FAERS Safety Report 13591400 (Version 3)
Quarter: 2017Q2

REPORT INFORMATION
  Report Type: Spontaneous
  Country: US (occurrence: US)
  Receive Date: 20170529
  Receipt Date: 20170627
  Transmission Date: 20170830
  Serious: No
  Sender: FDA-Public Use
  Company Number: US-PFIZER INC-2017231705

PATIENT
  Age: 74 Year
  Sex: Female

DRUGS (1)
  1. VENLAFAXINE HCL [Suspect]
     Active Substance: VENLAFAXINE HYDROCHLORIDE
     Dosage: 75 MG, 2X/DAY FOR 3 DAYS
     Dates: start: 201407, end: 2014

REACTIONS (7)
  - Screaming [Recovered/Resolved]
  - Drug intolerance [Unknown]
  - Headache [Recovered/Resolved]
  - Intentional product misuse [Unknown]
  - Nervousness [Recovered/Resolved]
  - Feeling abnormal [Recovered/Resolved]
  - Feeling abnormal [Unknown]

NARRATIVE: CASE EVENT DATE: 2014
